FAERS Safety Report 8352961-6 (Version None)
Quarter: 2012Q2

REPORT INFORMATION
  Report Type: 
  Country: None (occurrence: None)
  Receive Date: 20120511
  Receipt Date: 20120504
  Transmission Date: 20120825
  Serious: Yes (Other)
  Sender: FDA-Public Use
  Company Number: US-BAYER-2011-080117

PATIENT
  Age: 30 Year
  Sex: Female
  Weight: 58.957 kg

DRUGS (3)
  1. YAZ [Suspect]
     Dosage: UNK
     Dates: start: 20080101
  2. MOTRIN [Concomitant]
  3. IBUPROFEN (ADVIL) [Concomitant]

REACTIONS (9)
  - ANXIETY [None]
  - GALLBLADDER INJURY [None]
  - INJURY [None]
  - FATIGUE [None]
  - LAZINESS [None]
  - CHOLELITHIASIS [None]
  - PAIN [None]
  - EMOTIONAL DISTRESS [None]
  - ASTHENIA [None]
